FAERS Safety Report 8378669-9 (Version None)
Quarter: 2012Q2

REPORT INFORMATION
  Report Type: 
  Country: None (occurrence: None)
  Receive Date: 20120522
  Receipt Date: 20120514
  Transmission Date: 20120825
  Serious: Yes (Hospitalization)
  Sender: FDA-Public Use
  Company Number: GXBR2012US001386

PATIENT
  Age: 57 Year
  Sex: Male

DRUGS (1)
  1. TACROLIMUS [Suspect]
     Dosage: 2.5 MG IN AM, 2 MG IN PM
     Dates: end: 20120301

REACTIONS (2)
  - NEUROTOXICITY [None]
  - CATATONIA [None]
